FAERS Safety Report 18616656 (Version 1)
Quarter: 2020Q4

REPORT INFORMATION
  Report Type: Spontaneous
  Country: CA (occurrence: CA)
  Receive Date: 20201215
  Receipt Date: 20201215
  Transmission Date: 20210114
  Serious: Yes (Other)
  Sender: FDA-Public Use
  Company Number: CA-ROCHE-2729797

PATIENT
  Sex: Female

DRUGS (31)
  1. LEFLUNOMIDE. [Concomitant]
     Active Substance: LEFLUNOMIDE
     Route: 065
     Dates: start: 20191126
  2. METHOTREXATE. [Concomitant]
     Active Substance: METHOTREXATE
     Route: 058
     Dates: start: 20080219
  3. METHOTREXATE. [Concomitant]
     Active Substance: METHOTREXATE
     Dates: start: 20110331
  4. METHOTREXATE. [Concomitant]
     Active Substance: METHOTREXATE
     Dates: start: 201305
  5. EPIPEN [Concomitant]
     Active Substance: EPINEPHRINE
  6. METOJECT [Concomitant]
     Active Substance: METHOTREXATE SODIUM
  7. RITUXAN [Suspect]
     Active Substance: RITUXIMAB
     Route: 065
     Dates: start: 20140129, end: 20140212
  8. LEFLUNOMIDE. [Concomitant]
     Active Substance: LEFLUNOMIDE
     Dosage: WITH SUBSEQUENT INCREASED 20 MG DAILY DISCONTINUED
     Route: 065
     Dates: start: 20150530, end: 201606
  9. LEFLUNOMIDE. [Concomitant]
     Active Substance: LEFLUNOMIDE
     Dates: start: 20191125
  10. XELJANZ [Concomitant]
     Active Substance: TOFACITINIB CITRATE
     Dates: start: 201709
  11. ORENCIA [Concomitant]
     Active Substance: ABATACEPT
     Route: 042
     Dates: start: 201211
  12. METHOTREXATE SODIUM. [Suspect]
     Active Substance: METHOTREXATE SODIUM
     Route: 065
  13. BRENZYS [Concomitant]
     Active Substance: ETANERCEPT
     Dates: start: 20180328
  14. INFLIXIMAB [Concomitant]
     Active Substance: INFLIXIMAB
     Dates: start: 20191217
  15. PATADAY [Concomitant]
     Active Substance: OLOPATADINE HYDROCHLORIDE
  16. INFLECTRA [Concomitant]
     Active Substance: INFLIXIMAB-DYYB
     Indication: RHEUMATOID ARTHRITIS
     Route: 042
     Dates: start: 20201022
  17. INFLECTRA [Concomitant]
     Active Substance: INFLIXIMAB-DYYB
     Dosage: EVERY (Q) 0, 2, 6 WEEKS, THEN EVERY 8 WEEKS
     Dates: start: 20191217
  18. HYDROXYCHLOROQUINE [Concomitant]
     Active Substance: HYDROXYCHLOROQUINE
     Dosage: RESTARTED MARCH 2020
     Dates: start: 20051013
  19. RITUXAN [Suspect]
     Active Substance: RITUXIMAB
     Indication: PRODUCT USED FOR UNKNOWN INDICATION
     Route: 065
     Dates: start: 20130724, end: 20130807
  20. METHOTREXATE. [Concomitant]
     Active Substance: METHOTREXATE
     Route: 058
     Dates: start: 20051114
  21. CIPRALEX [Concomitant]
     Active Substance: ESCITALOPRAM OXALATE
  22. DYMISTA [Concomitant]
     Active Substance: AZELASTINE HYDROCHLORIDE\FLUTICASONE PROPIONATE
     Dosage: 137-50 MCG/DPRAY
  23. BUPROPION. [Concomitant]
     Active Substance: BUPROPION
  24. METHOTREXATE SODIUM. [Suspect]
     Active Substance: METHOTREXATE SODIUM
     Route: 065
  25. SULFASALAZINE. [Concomitant]
     Active Substance: SULFASALAZINE
  26. HUMIRA [Concomitant]
     Active Substance: ADALIMUMAB
     Dates: start: 200809
  27. BLEXTEN [Concomitant]
     Active Substance: BILASTINE
     Dosage: 4 TABLETS 1 TIME DAILY
  28. METHOTREXATE. [Concomitant]
     Active Substance: METHOTREXATE
     Dosage: 15 MG PER WEEK INCREASING TO 20 MG WEEKLY.
     Dates: start: 201706
  29. METHOTREXATE SODIUM. [Suspect]
     Active Substance: METHOTREXATE SODIUM
     Indication: PRODUCT USED FOR UNKNOWN INDICATION
     Route: 058
     Dates: start: 2005
  30. METHOTREXATE. [Concomitant]
     Active Substance: METHOTREXATE
     Dates: start: 20130807
  31. INFLECTRA [Concomitant]
     Active Substance: INFLIXIMAB-DYYB
     Route: 042
     Dates: start: 20200519, end: 20200908

REACTIONS (7)
  - Leukopenia [Unknown]
  - Fatigue [Unknown]
  - Drug ineffective [Unknown]
  - Nausea [Unknown]
  - Sjogren^s syndrome [Unknown]
  - Headache [Unknown]
  - Urticarial vasculitis [Unknown]
